FAERS Safety Report 10096687 (Version 1)
Quarter: 2014Q2

REPORT INFORMATION
  Report Type: Spontaneous
  Country: FR (occurrence: FR)
  Receive Date: 20140422
  Receipt Date: 20140422
  Transmission Date: 20141212
  Serious: Yes (Hospitalization)
  Sender: FDA-Public Use
  Company Number: FR-JNJFOC-20140413858

PATIENT
  Age: 68 Year
  Sex: Male

DRUGS (7)
  1. REMICADE [Suspect]
     Indication: ANKYLOSING SPONDYLITIS
     Route: 042
     Dates: start: 200510, end: 201403
  2. METHOTREXATE [Suspect]
     Indication: ANKYLOSING SPONDYLITIS
     Route: 048
     Dates: start: 2004
  3. SPECIAFOLDINE [Concomitant]
     Route: 065
  4. BISOPROLOL [Concomitant]
     Route: 065
  5. CACIT D3 [Concomitant]
     Route: 065
  6. RAMIPRIL [Concomitant]
     Dosage: DOSE: 2.5
     Route: 065
  7. PREVISCAN (PENTOXIFYLLINE) [Concomitant]
     Route: 065

REACTIONS (2)
  - Bacterial sepsis [Recovered/Resolved]
  - Cholecystectomy [Unknown]
